FAERS Safety Report 5610690-3 (Version None)
Quarter: 2008Q1

REPORT INFORMATION
  Report Type: 
  Country: None (occurrence: None)
  Receive Date: 20080130
  Receipt Date: 20080130
  Transmission Date: 20080703
  Serious: No
  Sender: FDA-Public Use
  Company Number: None

PATIENT
  Age: 19 Year
  Sex: Female
  Weight: 124.7392 kg

DRUGS (2)
  1. GEODON [Suspect]
     Indication: BIPOLAR DISORDER
     Dosage: 60MG  ONCE A DAY  PO
     Route: 048
     Dates: start: 20080125, end: 20080129
  2. GEODON [Suspect]
     Indication: HALLUCINATION, AUDITORY
     Dosage: 60MG  ONCE A DAY  PO
     Route: 048
     Dates: start: 20080125, end: 20080129

REACTIONS (3)
  - BLEPHAROSPASM [None]
  - BONE PAIN [None]
  - PAIN IN EXTREMITY [None]
